FAERS Safety Report 7731742-8 (Version None)
Quarter: 2011Q3

REPORT INFORMATION
  Report Type: 
  Country: None (occurrence: None)
  Receive Date: 20110906
  Receipt Date: 20110629
  Transmission Date: 20111222
  Serious: No
  Sender: FDA-Public Use
  Company Number: US-AMGEN-USASP2011033151

PATIENT
  Age: 65 Year
  Sex: Female

DRUGS (4)
  1. CALCIUM CARBONATE [Concomitant]
     Dosage: UNK
  2. LIPITOR [Concomitant]
  3. VITAMIN D [Concomitant]
     Dosage: 1 UNK, UNK
  4. PROLIA [Suspect]
     Indication: OSTEOPOROSIS POSTMENOPAUSAL
     Dosage: 60 MG, UNK
     Dates: start: 20110520

REACTIONS (2)
  - ARTHRITIS [None]
  - FATIGUE [None]
